FAERS Safety Report 8580914-1 (Version None)
Quarter: 2012Q3

REPORT INFORMATION
  Report Type: 
  Country: None (occurrence: None)
  Receive Date: 20120727
  Receipt Date: 20120718
  Transmission Date: 20120928
  Serious: Yes (Other)
  Sender: FDA-Public Use
  Company Number: 2012SA048260

PATIENT
  Age: 61 Year
  Sex: Female
  Weight: 82 kg

DRUGS (5)
  1. CRESTOR [Concomitant]
  2. ASPERCREME / UNKNOWN / UNKNOWN [Suspect]
     Indication: NECK PAIN
     Dosage: ;TOPICAL
     Route: 061
     Dates: start: 20120601, end: 20120629
  3. ASPERCREME / UNKNOWN / UNKNOWN [Suspect]
     Indication: MUSCULOSKELETAL PAIN
     Dosage: ;TOPICAL
     Route: 061
     Dates: start: 20120601, end: 20120629
  4. MELOXICAM [Concomitant]
  5. HYDROCODONE BITARTRATE [Concomitant]

REACTIONS (4)
  - APPLICATION SITE BURN [None]
  - APPLICATION SITE SCAB [None]
  - APPLICATION SITE SCAR [None]
  - APPLICATION SITE INFECTION [None]
